FAERS Safety Report 5326930-4 (Version None)
Quarter: 2007Q2

REPORT INFORMATION
  Report Type: 
  Country: None (occurrence: None)
  Receive Date: 20070504
  Receipt Date: 20070423
  Transmission Date: 20071010
  Serious: Yes (Other)
  Sender: FDA-Public Use
  Company Number: B0468617A

PATIENT
  Age: 41 Year
  Sex: Male

DRUGS (5)
  1. ABACAVIR SULFATE [Suspect]
     Indication: HIV INFECTION
     Dates: start: 19990101
  2. LAMIVUDINE [Suspect]
     Indication: HIV INFECTION
     Dosage: UNK / UNKNOWN / ORAL
     Route: 048
     Dates: start: 19990101
  3. ZIDOVUDINE [Suspect]
     Indication: HIV INFECTION
     Dates: start: 19990101
  4. TENOFOVIR DISOPROXIL FUMARATE [Suspect]
     Indication: HIV INFECTION
     Dates: start: 19990101
  5. NEVIRAPINE [Suspect]
     Indication: HIV INFECTION
     Dosage: UNK / SEE DOSAGE TEXT / UNKNOWN

REACTIONS (10)
  - ABDOMINAL PAIN [None]
  - ALANINE AMINOTRANSFERASE INCREASED [None]
  - ASPARTATE AMINOTRANSFERASE INCREASED [None]
  - BLOOD ALBUMIN DECREASED [None]
  - BLOOD ALKALINE PHOSPHATASE INCREASED [None]
  - BLOOD BILIRUBIN INCREASED [None]
  - BLOOD HIV RNA INCREASED [None]
  - CD4 LYMPHOCYTES DECREASED [None]
  - JAUNDICE [None]
  - LYMPHOCYTE COUNT INCREASED [None]
